FAERS Safety Report 8146090-4 (Version None)
Quarter: 2012Q1

REPORT INFORMATION
  Report Type: 
  Country: None (occurrence: None)
  Receive Date: 20120217
  Receipt Date: 20110221
  Transmission Date: 20120608
  Serious: No
  Sender: FDA-Public Use
  Company Number: US-ABBOTT-11P-163-0706398-00

PATIENT
  Sex: Male
  Weight: 93.07 kg

DRUGS (4)
  1. ENERGY DRINK [Suspect]
     Indication: PRODUCT USED FOR UNKNOWN INDICATION
     Dates: start: 20110101
  2. SYNTHROID [Concomitant]
     Dates: start: 20090101
  3. SIMCOR [Suspect]
     Indication: BLOOD CHOLESTEROL INCREASED
     Dosage: 500/20MG 1 IN 1 D
     Dates: start: 20101201
  4. SYNTHROID [Concomitant]
     Indication: HYPOTHYROIDISM
     Dates: start: 20050101, end: 20090101

REACTIONS (6)
  - DIZZINESS [None]
  - HEART RATE INCREASED [None]
  - PARAESTHESIA [None]
  - HYPOTENSION [None]
  - FEELING HOT [None]
  - ERYTHEMA [None]
